FAERS Safety Report 9731481 (Version 2)
Quarter: 2013Q4

REPORT INFORMATION
  Report Type: Spontaneous
  Country: US (occurrence: US)
  Receive Date: 20131205
  Receipt Date: 20131231
  Transmission Date: 20140711
  Serious: Yes (Death)
  Sender: FDA-Public Use
  Company Number: US-ROCHE-1312925

PATIENT
  Age: 47 Year
  Sex: Male

DRUGS (2)
  1. CELLCEPT [Suspect]
     Indication: AMPUTATION
     Route: 065
  2. CELLCEPT [Suspect]
     Indication: RENAL TRANSPLANT

REACTIONS (1)
  - Death [Fatal]
